FAERS Safety Report 25506778 (Version 1)
Quarter: 2025Q3

REPORT INFORMATION
  Report Type: Spontaneous
  Country: US (occurrence: US)
  Receive Date: 20250702
  Receipt Date: 20250702
  Transmission Date: 20251021
  Serious: No
  Sender: RADIUS PHARM
  Company Number: US-RADIUS HEALTH INC.-2024US009962

PATIENT
  Sex: Female

DRUGS (1)
  1. TYMLOS [Suspect]
     Active Substance: ABALOPARATIDE
     Indication: Product used for unknown indication
     Route: 065

REACTIONS (4)
  - Alopecia [Recovered/Resolved]
  - Condition aggravated [Recovered/Resolved]
  - Fatigue [Recovering/Resolving]
  - Abdominal distension [Unknown]
